FAERS Safety Report 4596133-X (Version None)
Quarter: 2005Q1

REPORT INFORMATION
  Report Type: 
  Country: None (occurrence: None)
  Receive Date: 20050302
  Receipt Date: 20040830
  Transmission Date: 20050727
  Serious: Yes (Disabling)
  Sender: FDA-Public Use
  Company Number: BR-ROCHE-379067

PATIENT
  Age: 59 Year
  Sex: Female

DRUGS (6)
  1. RIVOTRIL [Suspect]
     Indication: NERVOUSNESS
     Route: 048
     Dates: start: 20010615
  2. RIVOTRIL [Suspect]
     Route: 048
     Dates: start: 20020615, end: 20040828
  3. RIVOTRIL [Suspect]
     Route: 048
  4. HYDROCHLOROTHIAZIDE [Concomitant]
     Indication: URINARY TRACT DISORDER
     Route: 048
  5. PROPRANOLOL [Concomitant]
     Indication: HYPERTENSION
     Route: 048
  6. IMIPRAMINE [Concomitant]
     Route: 048
     Dates: start: 20020615, end: 20030615

REACTIONS (9)
  - ABDOMINAL PAIN UPPER [None]
  - ASTHENIA [None]
  - DRUG WITHDRAWAL SYNDROME [None]
  - HYPERHIDROSIS [None]
  - MUSCLE SPASMS [None]
  - NECK PAIN [None]
  - NIGHTMARE [None]
  - PALPITATIONS [None]
  - SENSATION OF HEAVINESS [None]
